FAERS Safety Report 5885905-7 (Version None)
Quarter: 2008Q3

REPORT INFORMATION
  Report Type: 
  Country: None (occurrence: None)
  Receive Date: 20080917
  Receipt Date: 20080620
  Transmission Date: 20090109
  Serious: No
  Sender: FDA-Public Use
  Company Number: US-BAYER-200827152NA

PATIENT
  Age: 51 Year
  Sex: Female
  Weight: 53 kg

DRUGS (1)
  1. AVELOX [Suspect]
     Indication: BRONCHITIS
     Dosage: TOTAL DAILY DOSE: 400 MG  UNIT DOSE: 400 MG
     Route: 048
     Dates: start: 20080619, end: 20080619

REACTIONS (3)
  - DIZZINESS [None]
  - HEADACHE [None]
  - NAUSEA [None]
